FAERS Safety Report 5238990-X (Version None)
Quarter: 2007Q1

REPORT INFORMATION
  Report Type: 
  Country: None (occurrence: None)
  Receive Date: 20070209
  Receipt Date: 20070201
  Transmission Date: 20070707
  Serious: Yes (Hospitalization)
  Sender: FDA-Public Use
  Company Number: 430064K06USA

PATIENT
  Age: 21 Year
  Sex: Female
  Weight: 136.0791 kg

DRUGS (5)
  1. NOVANTRONE [Suspect]
     Indication: MULTIPLE SCLEROSIS
     Dosage: NOT REPORTED, ONCE, NOT REPORTED
     Dates: start: 20051207, end: 20051207
  2. REBIF [Suspect]
     Indication: MULTIPLE SCLEROSIS
     Dosage: 44 MCG, 3 IN 1 WEEKS, SUBCUTANEOUS
     Route: 058
     Dates: start: 20040101
  3. WELLBUTRIN [Concomitant]
  4. CLONAZEPAM [Concomitant]
  5. NEXIUM [Concomitant]

REACTIONS (2)
  - HEADACHE [None]
  - SHUNT OCCLUSION [None]
